FAERS Safety Report 4668251-9 (Version None)
Quarter: 2005Q2

REPORT INFORMATION
  Report Type: 
  Country: None (occurrence: None)
  Receive Date: 20050523
  Receipt Date: 20050224
  Transmission Date: 20051028
  Serious: Yes (Other)
  Sender: FDA-Public Use
  Company Number: PHEH2005US02455

PATIENT
  Age: 80 Year
  Sex: Male
  Weight: 93 kg

DRUGS (1)
  1. PAMIDRONATE DISODIUM [Suspect]
     Indication: MULTIPLE MYELOMA
     Dosage: 90 MG, QMO
     Route: 042
     Dates: start: 19980501

REACTIONS (13)
  - ACTINOMYCOSIS [None]
  - BONE DEBRIDEMENT [None]
  - BONE LESION [None]
  - CELLULITIS [None]
  - JAW DISORDER [None]
  - OSTEOMYELITIS [None]
  - OSTEONECROSIS [None]
  - PAIN IN JAW [None]
  - PRIMARY SEQUESTRUM [None]
  - SEQUESTRECTOMY [None]
  - SOFT TISSUE INFECTION [None]
  - SWELLING [None]
  - TOOTH EXTRACTION [None]
